FAERS Safety Report 21666704 (Version 12)
Quarter: 2023Q1

REPORT INFORMATION
  Report Type: Spontaneous
  Country: US (occurrence: US)
  Receive Date: 20221201
  Receipt Date: 20230301
  Transmission Date: 20230418
  Serious: Yes (Other)
  Sender: FDA-Public Use
  Company Number: US-UNITED THERAPEUTICS-UNT-2022-026289

PATIENT
  Sex: Female

DRUGS (14)
  1. REMODULIN [Suspect]
     Active Substance: TREPROSTINIL
     Indication: Pulmonary arterial hypertension
     Dosage: UNK, CONTINUING
     Route: 058
     Dates: start: 20221004
  2. REMODULIN [Suspect]
     Active Substance: TREPROSTINIL
     Dosage: 0.02179 ?G/KG, CONTINUING
     Route: 058
     Dates: start: 202210
  3. REMODULIN [Suspect]
     Active Substance: TREPROSTINIL
     Dosage: 0.02587 ?G/KG, CONTINUING
     Route: 058
     Dates: start: 2022
  4. REMODULIN [Suspect]
     Active Substance: TREPROSTINIL
     Dosage: 0.03132 ?G/KG, CONTINUING
     Route: 058
     Dates: start: 2022
  5. REMODULIN [Suspect]
     Active Substance: TREPROSTINIL
     Dosage: 0.03268 ?G/KG, CONTINUING
     Route: 058
     Dates: start: 2022
  6. REMODULIN [Suspect]
     Active Substance: TREPROSTINIL
     Dosage: 0.03949 ?G/KG, CONTINUING
     Route: 058
     Dates: start: 2022
  7. REMODULIN [Suspect]
     Active Substance: TREPROSTINIL
     Dosage: UNK, (AT AN INFUSION RATE OF 31 UL/HOUR) CONTINUING
     Route: 058
  8. REMODULIN [Suspect]
     Active Substance: TREPROSTINIL
     Dosage: 0.04221 ?G/KG, (AT AN INFUSION RATE OF 30 UL/HOUR) CONTINUING
     Route: 058
     Dates: start: 2022
  9. REMODULIN [Suspect]
     Active Substance: TREPROSTINIL
     Dosage: 0.04085 ?G/KG, CONTINUING
     Route: 058
     Dates: start: 20230104
  10. ADEMPAS [Suspect]
     Active Substance: RIOCIGUAT
     Indication: Product used for unknown indication
     Dosage: UNK
     Route: 065
  11. ADEMPAS [Suspect]
     Active Substance: RIOCIGUAT
     Dosage: 1 MG, TID
     Route: 065
     Dates: start: 2022
  12. TYLENOL [Suspect]
     Active Substance: ACETAMINOPHEN
     Indication: Infusion site pain
     Dosage: UNK
     Route: 065
  13. TYLENOL [Suspect]
     Active Substance: ACETAMINOPHEN
     Indication: Pain
  14. TRAMADOL [Suspect]
     Active Substance: TRAMADOL
     Indication: Pain
     Dosage: UNK
     Route: 065

REACTIONS (54)
  - Heart rate irregular [Recovered/Resolved]
  - Presyncope [Unknown]
  - Infusion site pain [Recovering/Resolving]
  - Nausea [Recovered/Resolved]
  - Device malfunction [Recovered/Resolved]
  - Device use error [Recovered/Resolved]
  - Dizziness postural [Recovered/Resolved]
  - Dizziness exertional [Recovered/Resolved]
  - Headache [Unknown]
  - Flushing [Unknown]
  - Constipation [Unknown]
  - Pain [Unknown]
  - Arthralgia [Unknown]
  - Pain in jaw [Recovering/Resolving]
  - Diarrhoea [Recovering/Resolving]
  - Infusion site pruritus [Unknown]
  - Malaise [Unknown]
  - Dizziness [Unknown]
  - Retching [Unknown]
  - Myalgia [Unknown]
  - Tinnitus [Unknown]
  - Ear pain [Unknown]
  - Rhinorrhoea [Unknown]
  - Expired product administered [Recovered/Resolved]
  - Product odour abnormal [Unknown]
  - Heart rate increased [Unknown]
  - Infusion site induration [Not Recovered/Not Resolved]
  - Infusion site erythema [Unknown]
  - Infusion site swelling [Unknown]
  - Infusion site warmth [Not Recovered/Not Resolved]
  - Therapy non-responder [Unknown]
  - Device infusion issue [Recovered/Resolved]
  - Infusion site haemorrhage [Recovered/Resolved]
  - Abdominal distension [Recovered/Resolved]
  - Decreased appetite [Unknown]
  - Product dose omission issue [Recovered/Resolved]
  - Device malfunction [Recovered/Resolved]
  - Muscle atrophy [Unknown]
  - Feeling abnormal [Unknown]
  - Pain in extremity [Recovering/Resolving]
  - Oral pain [Unknown]
  - Odynophagia [Unknown]
  - Sleep disorder [Unknown]
  - Chest pain [Unknown]
  - Blood pressure decreased [Unknown]
  - Oxygen saturation decreased [Unknown]
  - Weight decreased [Unknown]
  - Therapy partial responder [Unknown]
  - Somnolence [Unknown]
  - Joint swelling [Unknown]
  - Fluid retention [Unknown]
  - Infusion site discharge [Not Recovered/Not Resolved]
  - Infusion site discolouration [Not Recovered/Not Resolved]
  - Infusion site infection [Unknown]

NARRATIVE: CASE EVENT DATE: 20220101
